FAERS Safety Report 5772248-5 (Version None)
Quarter: 2008Q2

REPORT INFORMATION
  Report Type: 
  Country: None (occurrence: None)
  Receive Date: 20080613
  Receipt Date: 20080603
  Transmission Date: 20081010
  Serious: Yes (Other)
  Sender: FDA-Public Use
  Company Number: PHHY2008JP09671

PATIENT

DRUGS (5)
  1. ZOMETA [Suspect]
     Indication: BONE LESION
     Dosage: 4 MG/DAY
     Route: 042
  2. DECADRON [Concomitant]
     Route: 048
  3. ITRIZOLE [Concomitant]
  4. RABEPRAZOLE SODIUM [Concomitant]
     Route: 048
  5. SULFAMETHOXAZOLE AND TRIMETHOPRIM [Concomitant]

REACTIONS (1)
  - OSTEONECROSIS [None]
